FAERS Safety Report 7737238-1 (Version None)
Quarter: 2011Q3

REPORT INFORMATION
  Report Type: 
  Country: None (occurrence: None)
  Receive Date: 20110908
  Receipt Date: 20110829
  Transmission Date: 20111222
  Serious: Yes (Other)
  Sender: FDA-Public Use
  Company Number: CA-JNJFOC-20110900329

PATIENT
  Sex: Female
  Weight: 91.9 kg

DRUGS (7)
  1. CALCIUM CARBONATE [Concomitant]
  2. REMICADE [Suspect]
     Indication: CROHN'S DISEASE
     Route: 042
     Dates: start: 20110829
  3. VITAMIN D [Concomitant]
  4. SYNTHROID [Concomitant]
  5. MICARDIS [Concomitant]
  6. FERROUS SULFATE TAB [Concomitant]
  7. PURINETHOL [Concomitant]

REACTIONS (8)
  - OEDEMA [None]
  - PRURITUS [None]
  - CHILLS [None]
  - INFUSION RELATED REACTION [None]
  - THROAT IRRITATION [None]
  - RASH ERYTHEMATOUS [None]
  - TREMOR [None]
  - ANXIETY [None]
